FAERS Safety Report 24079809 (Version 2)
Quarter: 2024Q4

REPORT INFORMATION
  Report Type: Report from Study
  Country: TH (occurrence: TH)
  Receive Date: 20240711
  Receipt Date: 20241216
  Transmission Date: 20250115
  Serious: Yes (Death, Hospitalization, Other)
  Sender: ALEXION PHARMACEUTICALS
  Company Number: 2023A054410

PATIENT
  Age: 78 Year

DRUGS (15)
  1. TAGRISSO [Suspect]
     Active Substance: OSIMERTINIB
     Indication: Non-small cell lung cancer metastatic
     Dosage: 80 MILLIGRAM, QD
  2. TAGRISSO [Suspect]
     Active Substance: OSIMERTINIB
     Dosage: 80 MILLIGRAM, QD
     Route: 048
  3. TAGRISSO [Suspect]
     Active Substance: OSIMERTINIB
     Dosage: 80 MILLIGRAM, QD
  4. TAGRISSO [Suspect]
     Active Substance: OSIMERTINIB
     Dosage: 80 MILLIGRAM, QD
     Route: 048
  5. TAGRISSO [Suspect]
     Active Substance: OSIMERTINIB
     Dosage: 80 MILLIGRAM, QOD
  6. TAGRISSO [Suspect]
     Active Substance: OSIMERTINIB
     Dosage: 80 MILLIGRAM, QOD
     Route: 048
  7. TAGRISSO [Suspect]
     Active Substance: OSIMERTINIB
     Dosage: 80 MILLIGRAM, QOD
  8. TAGRISSO [Suspect]
     Active Substance: OSIMERTINIB
     Dosage: 80 MILLIGRAM, QOD
     Route: 048
  9. TAGRISSO [Suspect]
     Active Substance: OSIMERTINIB
     Dosage: 80 MILLIGRAM, QD
  10. TAGRISSO [Suspect]
     Active Substance: OSIMERTINIB
     Dosage: 80 MILLIGRAM, QD
     Route: 048
  11. TAGRISSO [Suspect]
     Active Substance: OSIMERTINIB
     Dosage: 80 MILLIGRAM, QD
  12. TAGRISSO [Suspect]
     Active Substance: OSIMERTINIB
     Dosage: 80 MILLIGRAM, QD
     Route: 048
  13. FOLIC ACID [Suspect]
     Active Substance: FOLIC ACID
     Route: 065
  14. FOLIC ACID [Suspect]
     Active Substance: FOLIC ACID
     Route: 065
  15. FERROUS FUMARATE [Concomitant]
     Active Substance: FERROUS FUMARATE

REACTIONS (7)
  - Pneumonia [Fatal]
  - Lung cancer metastatic [Fatal]
  - Headache [Not Recovered/Not Resolved]
  - Fall [Unknown]
  - Upper limb fracture [Unknown]
  - Accident [Unknown]
  - Off label use [Unknown]
